FAERS Safety Report 19130687 (Version 2)
Quarter: 2024Q1

REPORT INFORMATION
  Report Type: Spontaneous
  Country: RO (occurrence: RO)
  Receive Date: 20210414
  Receipt Date: 20240314
  Transmission Date: 20240409
  Serious: Yes (Other)
  Sender: FDA-Public Use
  Company Number: RO-CELLTRION INC.-2021RO004628

PATIENT

DRUGS (13)
  1. RITUXIMAB [Suspect]
     Active Substance: RITUXIMAB
     Indication: Follicular lymphoma
     Dosage: 8 R-CHOP CYCLES
     Route: 065
     Dates: start: 201801, end: 201807
  2. RITUXIMAB [Suspect]
     Active Substance: RITUXIMAB
     Dosage: R-DHAP 6 CYCLES
     Route: 065
  3. RITUXIMAB [Suspect]
     Active Substance: RITUXIMAB
     Dosage: MAINTENANCE IMMUNOTHERAPY
     Route: 058
  4. OBINUTUZUMAB [Suspect]
     Active Substance: OBINUTUZUMAB
     Indication: Follicular lymphoma
     Dosage: 6 CYCLES D1
     Route: 042
     Dates: start: 201912, end: 202004
  5. OBINUTUZUMAB [Suspect]
     Active Substance: OBINUTUZUMAB
     Dosage: D1, 8, 15
     Route: 042
     Dates: start: 20191127
  6. DOXORUBICIN [Suspect]
     Active Substance: DOXORUBICIN
     Indication: Follicular lymphoma
     Dosage: 8 R-CHOP CYCLES
     Route: 065
     Dates: start: 201801, end: 201807
  7. CISPLATIN [Suspect]
     Active Substance: CISPLATIN
     Indication: Follicular lymphoma
     Dosage: 6 CYCLES R-DHAP
     Route: 065
  8. DEXAMETHASONE [Suspect]
     Active Substance: DEXAMETHASONE
     Indication: Follicular lymphoma
     Dosage: 6 CYCLES R-DHAP
     Route: 065
  9. VINCRISTINE [Suspect]
     Active Substance: VINCRISTINE
     Indication: Follicular lymphoma
     Dosage: 8 R-CHOP CYCLES
     Route: 065
     Dates: start: 201801, end: 201807
  10. BENDAMUSTINE [Suspect]
     Active Substance: BENDAMUSTINE
     Indication: Follicular lymphoma
     Dosage: 90 MG/M2, 6 CYCLES, D1,2
     Route: 065
     Dates: start: 201912, end: 202004
  11. BENDAMUSTINE [Suspect]
     Active Substance: BENDAMUSTINE
     Dosage: (TD 180MG),D1, 2
     Route: 065
     Dates: start: 20191127
  12. PREDNISOLONE [Suspect]
     Active Substance: PREDNISOLONE
     Indication: Follicular lymphoma
     Dosage: 8 R-CHOP CYCLES
     Route: 065
     Dates: start: 201801, end: 201807
  13. CYCLOPHOSPHAMIDE [Suspect]
     Active Substance: CYCLOPHOSPHAMIDE
     Indication: Follicular lymphoma
     Dosage: 8 R-CHOP CYCLES
     Route: 065
     Dates: start: 201801, end: 201807

REACTIONS (5)
  - Metabolic disorder [Unknown]
  - Neoplasm [Unknown]
  - Hyperglycaemia [Unknown]
  - Therapy partial responder [Unknown]
  - Intentional product use issue [Unknown]

NARRATIVE: CASE EVENT DATE: 20180101
